FAERS Safety Report 12191305 (Version 2)
Quarter: 2016Q2

REPORT INFORMATION
  Report Type: Report from Study
  Country: DE (occurrence: DE)
  Receive Date: 20160318
  Receipt Date: 20160407
  Transmission Date: 20160815
  Serious: Yes (Death, Other)
  Sender: FDA-Public Use
  Company Number: DE-ACTELION-A-CH2016-132828

PATIENT
  Age: 78 Year
  Sex: Male

DRUGS (2)
  1. TRACLEER [Suspect]
     Active Substance: BOSENTAN
     Indication: SCLERODERMA ASSOCIATED DIGITAL ULCER
     Dosage: 62.5 MG, BID
     Route: 048
     Dates: start: 20120807, end: 201208
  2. TRACLEER [Suspect]
     Active Substance: BOSENTAN
     Dosage: 125 MG, BID
     Route: 048
     Dates: start: 201208, end: 20160114

REACTIONS (6)
  - Ileus paralytic [Recovered/Resolved with Sequelae]
  - Fall [Unknown]
  - Systemic sclerosis [Fatal]
  - Femoral neck fracture [Recovered/Resolved with Sequelae]
  - Condition aggravated [Fatal]
  - Hip surgery [Unknown]

NARRATIVE: CASE EVENT DATE: 20150830
